FAERS Safety Report 5152643-8 (Version None)
Quarter: 2006Q4

REPORT INFORMATION
  Report Type: 
  Country: None (occurrence: None)
  Receive Date: 20061109
  Receipt Date: 20061024
  Transmission Date: 20070319
  Serious: Yes (Hospitalization)
  Sender: FDA-Public Use
  Company Number: 2006002049

PATIENT
  Age: 64 Year
  Sex: Male
  Weight: 93.9 kg

DRUGS (10)
  1. ERLOTINIB (TABLET) [Suspect]
     Indication: RENAL CANCER METASTATIC
     Dosage: 100 MG (QD), ORAL
     Route: 048
     Dates: start: 20060724
  2. SIROLIMUS (SIROLIMUS) [Suspect]
     Indication: RENAL CANCER METASTATIC
     Dosage: 1MG (QOD), ORAL
     Route: 048
     Dates: start: 20060731
  3. VITAMIN B (VITAMIN B) [Concomitant]
  4. PRILOSEC [Concomitant]
  5. ACETAZOLAMID (ACETAZOLAMIDE) [Concomitant]
  6. POTASSIUM CITRATE [Concomitant]
  7. FOLIC ACID [Concomitant]
  8. ZANTAC [Concomitant]
  9. TUCKS (TUCKS) [Concomitant]
  10. BIOTENE MOUTH WASH (GLUCOSE OXIDASE) [Concomitant]

REACTIONS (12)
  - BUNDLE BRANCH BLOCK LEFT [None]
  - CHEST PAIN [None]
  - CHEST X-RAY ABNORMAL [None]
  - ELECTROCARDIOGRAM QT PROLONGED [None]
  - ELECTROCARDIOGRAM T WAVE ABNORMAL [None]
  - ELECTROCARDIOGRAM T WAVE AMPLITUDE INCREASED [None]
  - GASTROOESOPHAGEAL REFLUX DISEASE [None]
  - HYPOTENSION [None]
  - LUNG DISORDER [None]
  - PALLOR [None]
  - QRS AXIS ABNORMAL [None]
  - SINUS TACHYCARDIA [None]
